FAERS Safety Report 4686403-9 (Version None)
Quarter: 2005Q2

REPORT INFORMATION
  Report Type: 
  Country: None (occurrence: None)
  Receive Date: 20050609
  Receipt Date: 20050531
  Transmission Date: 20051028
  Serious: Yes (Hospitalization)
  Sender: FDA-Public Use
  Company Number: US-ROCHE-406479

PATIENT
  Age: 52 Year
  Sex: Female
  Weight: 54 kg

DRUGS (3)
  1. PEGASYS [Suspect]
     Indication: HEPATITIS C
     Route: 058
     Dates: start: 20050408, end: 20050527
  2. COPEGUS [Suspect]
     Indication: HEPATITIS C
     Dosage: FORM REPORTED AS PILLS.
     Route: 048
     Dates: start: 20050408, end: 20050527
  3. FLUOXETINE [Concomitant]
     Indication: DEPRESSION
     Route: 048
     Dates: start: 20050430

REACTIONS (15)
  - ANAEMIA [None]
  - ASTHENIA [None]
  - COUGH [None]
  - DEHYDRATION [None]
  - DIZZINESS [None]
  - DYSPNOEA [None]
  - FATIGUE [None]
  - INFECTED CYST [None]
  - NAUSEA [None]
  - NEUTROPENIA [None]
  - PALPITATIONS [None]
  - RESPIRATORY TRACT CONGESTION [None]
  - URINARY TRACT INFECTION [None]
  - VOMITING [None]
  - WEIGHT DECREASED [None]
